FAERS Safety Report 4947500-3 (Version None)
Quarter: 2006Q1

REPORT INFORMATION
  Report Type: 
  Country: None (occurrence: None)
  Receive Date: 20060320
  Receipt Date: 20060303
  Transmission Date: 20060701
  Serious: Yes (Death)
  Sender: FDA-Public Use
  Company Number: US-BOEHRINGER INGELHEIM PHARMACEUTICALS, INC.-2006-BP-02443BP

PATIENT
  Age: 56 Year
  Sex: Male

DRUGS (2)
  1. APTIVUS [Suspect]
     Indication: HIV INFECTION
     Dosage: 1000 MG / 400 MG
     Route: 048
  2. APTIVUS [Suspect]
     Indication: RETROVIRAL INFECTION

REACTIONS (1)
  - COMPLETED SUICIDE [None]
